FAERS Safety Report 5113856-4 (Version None)
Quarter: 2006Q3

REPORT INFORMATION
  Report Type: 
  Country: None (occurrence: None)
  Receive Date: 20060921
  Receipt Date: 20060911
  Transmission Date: 20061208
  Serious: No
  Sender: FDA-Public Use
  Company Number: 2006111267

PATIENT
  Sex: Female

DRUGS (1)
  1. LYRICA [Suspect]
     Dosage: 150 MG (50 MG)

REACTIONS (3)
  - BLOOD PRESSURE ABNORMAL [None]
  - HYPERTENSION [None]
  - HYPOTENSION [None]
